FAERS Safety Report 18464926 (Version 2)
Quarter: 2020Q4

REPORT INFORMATION
  Report Type: Report from Study
  Country: US (occurrence: US)
  Receive Date: 20201105
  Receipt Date: 20201117
  Transmission Date: 20210114
  Serious: Yes (Death)
  Sender: FDA-Public Use
  Company Number: US-TAKEDA-US202029907

PATIENT
  Age: 77 Year
  Sex: Female

DRUGS (28)
  1. TEDUGLUTIDE [Suspect]
     Active Substance: TEDUGLUTIDE
     Dosage: 2.35 MILLIGRAM (0.05 MILLIGRAM/KILOGRAM DAILY DOSE), 3 DOSES PER WEEK
     Route: 065
     Dates: start: 20160719, end: 20161201
  2. TEDUGLUTIDE [Suspect]
     Active Substance: TEDUGLUTIDE
     Dosage: 2.35 MILLIGRAM (0.05 MILLIGRAM/KILOGRAM DAILY DOSE), 3 DOSES PER WEEK
     Route: 065
     Dates: start: 20160719, end: 20161201
  3. COZAAR [Concomitant]
     Active Substance: LOSARTAN POTASSIUM
     Indication: HYPERTENSION
  4. TEDUGLUTIDE [Suspect]
     Active Substance: TEDUGLUTIDE
     Indication: SHORT-BOWEL SYNDROME
     Dosage: 2.35 MILLIGRAM (0.05 MILLIGRAM/KILOGRAM DAILY DOSE), 7 DOSES PER WEEK
     Route: 065
     Dates: start: 20131021, end: 20141029
  5. TEDUGLUTIDE [Suspect]
     Active Substance: TEDUGLUTIDE
     Indication: SHORT-BOWEL SYNDROME
     Dosage: 2.35 MILLIGRAM (0.05 MILLIGRAM/KILOGRAM DAILY DOSE), 7 DOSES PER WEEK
     Route: 065
     Dates: start: 20131021, end: 20141029
  6. TEDUGLUTIDE [Suspect]
     Active Substance: TEDUGLUTIDE
     Dosage: 2.35 MILLIGRAM (0.05 MILLIGRAM/KILOGRAM DAILY DOSE), 3 DOSES PER WEEK
     Route: 065
     Dates: start: 20141125, end: 20151216
  7. TEDUGLUTIDE [Suspect]
     Active Substance: TEDUGLUTIDE
     Dosage: 2.35 MILLIGRAM (0.05 MILLIGRAM/KILOGRAM DAILY DOSE), 3 DOSES PER WEEK
     Route: 065
     Dates: start: 20141125, end: 20151216
  8. TEDUGLUTIDE [Suspect]
     Active Substance: TEDUGLUTIDE
     Dosage: 2.35 MILLIGRAM (0.05 MILLIGRAM/KILOGRAM DAILY DOSE), 3 DOSES PER WEEK
     Route: 065
     Dates: start: 20161215, end: 20170817
  9. TEDUGLUTIDE [Suspect]
     Active Substance: TEDUGLUTIDE
     Dosage: 2.35 MILLIGRAM (0.05 MILLIGRAM/KILOGRAM DAILY DOSE), 3 DOSES PER WEEK
     Route: 065
     Dates: start: 20170901, end: 20170914
  10. TEDUGLUTIDE [Suspect]
     Active Substance: TEDUGLUTIDE
     Dosage: 2.35 MILLIGRAM (0.05 MILLIGRAM/KILOGRAM DAILY DOSE), 3 DOSES PER WEEK
     Route: 065
     Dates: start: 20141125, end: 20151216
  11. TEDUGLUTIDE [Suspect]
     Active Substance: TEDUGLUTIDE
     Dosage: 2.35 MILLIGRAM (0.05 MILLIGRAM/KILOGRAM DAILY DOSE), 3 DOSES PER WEEK
     Route: 065
     Dates: start: 20170901, end: 20170914
  12. TEDUGLUTIDE [Suspect]
     Active Substance: TEDUGLUTIDE
     Dosage: 2.35 MILLIGRAM (0.05 MILLIGRAM/KILOGRAM DAILY DOSE), 3 DOSES PER WEEK
     Route: 065
     Dates: start: 20170928, end: 20180412
  13. TEDUGLUTIDE [Suspect]
     Active Substance: TEDUGLUTIDE
     Dosage: 2.35 MILLIGRAM (0.05 MILLIGRAM/KILOGRAM DAILY DOSE), 3 DOSES PER WEEK
     Route: 065
     Dates: start: 20170928, end: 20180412
  14. TEDUGLUTIDE [Suspect]
     Active Substance: TEDUGLUTIDE
     Dosage: 2.35 MILLIGRAM (0.05 MILLIGRAM/KILOGRAM DAILY DOSE), 3 DOSES PER WEEK
     Route: 065
     Dates: start: 20141125, end: 20151216
  15. TEDUGLUTIDE [Suspect]
     Active Substance: TEDUGLUTIDE
     Dosage: 2.35 MILLIGRAM (0.05 MILLIGRAM/KILOGRAM DAILY DOSE), 3 DOSES PER WEEK
     Route: 065
     Dates: start: 20170928, end: 20180412
  16. TEDUGLUTIDE [Suspect]
     Active Substance: TEDUGLUTIDE
     Dosage: 2.35 MILLIGRAM (0.05 MILLIGRAM/KILOGRAM DAILY DOSE), 3 DOSES PER WEEK
     Route: 065
     Dates: start: 20160719, end: 20161201
  17. TEDUGLUTIDE [Suspect]
     Active Substance: TEDUGLUTIDE
     Dosage: 2.35 MILLIGRAM (0.05 MILLIGRAM/KILOGRAM DAILY DOSE), 3 DOSES PER WEEK
     Route: 065
     Dates: start: 20160719, end: 20161201
  18. TEDUGLUTIDE [Suspect]
     Active Substance: TEDUGLUTIDE
     Dosage: 2.35 MILLIGRAM (0.05 MILLIGRAM/KILOGRAM DAILY DOSE), 3 DOSES PER WEEK
     Route: 065
     Dates: start: 20170901, end: 20170914
  19. TEDUGLUTIDE [Suspect]
     Active Substance: TEDUGLUTIDE
     Dosage: 2.35 MILLIGRAM (0.05 MILLIGRAM/KILOGRAM DAILY DOSE), 3 DOSES PER WEEK
     Route: 065
     Dates: start: 20170901, end: 20170914
  20. TEDUGLUTIDE [Suspect]
     Active Substance: TEDUGLUTIDE
     Indication: SHORT-BOWEL SYNDROME
     Dosage: 2.35 MILLIGRAM (0.05 MILLIGRAM/KILOGRAM DAILY DOSE), 7 DOSES PER WEEK
     Route: 065
     Dates: start: 20131021, end: 20141029
  21. TEDUGLUTIDE [Suspect]
     Active Substance: TEDUGLUTIDE
     Indication: SHORT-BOWEL SYNDROME
     Dosage: 2.35 MILLIGRAM (0.05 MILLIGRAM/KILOGRAM DAILY DOSE), 7 DOSES PER WEEK
     Route: 065
     Dates: start: 20131021, end: 20141029
  22. TEDUGLUTIDE [Suspect]
     Active Substance: TEDUGLUTIDE
     Dosage: 2.35 MILLIGRAM (0.05 MILLIGRAM/KILOGRAM DAILY DOSE), 3 DOSES PER WEEK
     Route: 065
     Dates: start: 20161215, end: 20170817
  23. TEDUGLUTIDE [Suspect]
     Active Substance: TEDUGLUTIDE
     Dosage: 2.35 MILLIGRAM (0.05 MILLIGRAM/KILOGRAM DAILY DOSE), 3 DOSES PER WEEK
     Route: 065
     Dates: start: 20161215, end: 20170817
  24. TEDUGLUTIDE [Suspect]
     Active Substance: TEDUGLUTIDE
     Dosage: 2.35 MILLIGRAM (0.05 MILLIGRAM/KILOGRAM DAILY DOSE), 3 DOSES PER WEEK
     Route: 065
     Dates: start: 20161215, end: 20170817
  25. TEDUGLUTIDE [Suspect]
     Active Substance: TEDUGLUTIDE
     Dosage: 2.35 MILLIGRAM (0.05 MILLIGRAM/KILOGRAM DAILY DOSE), 3 DOSES PER WEEK
     Route: 065
     Dates: start: 20170928, end: 20180412
  26. CIPROFLOXACIN. [Concomitant]
     Active Substance: CIPROFLOXACIN
     Indication: DEVICE RELATED INFECTION
  27. TRIFLURIDINE. [Concomitant]
     Active Substance: TRIFLURIDINE
     Indication: CONJUNCTIVITIS VIRAL
  28. OCTREOTIDE ACETATE. [Concomitant]
     Active Substance: OCTREOTIDE ACETATE
     Indication: DIARRHOEA

REACTIONS (1)
  - End stage renal disease [Fatal]

NARRATIVE: CASE EVENT DATE: 20200907
